FAERS Safety Report 23595529 (Version 1)
Quarter: 2024Q1

REPORT INFORMATION
  Report Type: Spontaneous
  Country: US (occurrence: None)
  Receive Date: 20240304
  Receipt Date: 20240304
  Transmission Date: 20240410
  Serious: Yes (Other)
  Sender: FDA-Public Use
  Company Number: None

PATIENT
  Age: 33 Year
  Sex: Female

DRUGS (1)
  1. BOSULIF [Suspect]
     Active Substance: BOSUTINIB MONOHYDRATE
     Indication: Chronic myeloid leukaemia
     Dosage: 400MG QD ORAL
     Route: 048

REACTIONS (6)
  - Pruritus [None]
  - Diarrhoea [None]
  - Nausea [None]
  - Vomiting [None]
  - Maternal exposure during pregnancy [None]
  - Foetal exposure during pregnancy [None]
